FAERS Safety Report 6827488-0 (Version None)
Quarter: 2010Q3

REPORT INFORMATION
  Report Type: 
  Country: None (occurrence: None)
  Receive Date: 20100709
  Receipt Date: 20070118
  Transmission Date: 20110219
  Serious: Yes (Other)
  Sender: FDA-Public Use
  Company Number: US-PFIZER INC-2007005298

PATIENT
  Sex: Female
  Weight: 64 kg

DRUGS (4)
  1. CHANTIX [Suspect]
     Indication: EX-TOBACCO USER
     Dates: start: 20070115, end: 20070116
  2. SPIRIVA [Concomitant]
     Dates: end: 20070115
  3. ALBUTEROL [Concomitant]
     Route: 055
     Dates: end: 20070115
  4. LISINOPRIL [Concomitant]

REACTIONS (6)
  - DIZZINESS [None]
  - DYSPNOEA [None]
  - FATIGUE [None]
  - INSOMNIA [None]
  - MIDDLE INSOMNIA [None]
  - VERTIGO [None]
